FAERS Safety Report 17173387 (Version 2)
Quarter: 2019Q4

REPORT INFORMATION
  Report Type: Spontaneous
  Country: CN (occurrence: CN)
  Receive Date: 20191219
  Receipt Date: 20191220
  Transmission Date: 20200122
  Serious: Yes (Hospitalization)
  Sender: FDA-Public Use
  Company Number: CN-BAYER-2019-230038

PATIENT
  Age: 38 Year
  Sex: Male

DRUGS (1)
  1. ULTRAVIST [Suspect]
     Active Substance: IOPROMIDE
     Indication: COMPUTERISED TOMOGRAM LIVER
     Dosage: 100 ML, ONCE
     Dates: start: 20191216, end: 20191216

REACTIONS (5)
  - Flushing [Recovered/Resolved]
  - Hyperhidrosis [Recovered/Resolved]
  - Speech disorder [Recovered/Resolved]
  - Dizziness [Recovered/Resolved]
  - Slow response to stimuli [Recovered/Resolved]

NARRATIVE: CASE EVENT DATE: 20191216
